FAERS Safety Report 9249604 (Version 1)
Quarter: 2013Q2

REPORT INFORMATION
  Report Type: Spontaneous
  Country: US (occurrence: US)
  Receive Date: 20130423
  Receipt Date: 20130423
  Transmission Date: 20140414
  Serious: No
  Sender: FDA-Public Use
  Company Number: US-BRISTOL-MYERS SQUIBB COMPANY-17400508

PATIENT
  Age: 77 Year
  Sex: Male

DRUGS (1)
  1. YERVOY [Suspect]
     Indication: METASTATIC MALIGNANT MELANOMA
     Dosage: 2ND INF:22FEB2013?LAST INF:4MAR13
     Dates: start: 20130121

REACTIONS (2)
  - Rash [Unknown]
  - Pruritus [Unknown]
